FAERS Safety Report 8190107-8 (Version None)
Quarter: 2012Q1

REPORT INFORMATION
  Report Type: 
  Country: None (occurrence: None)
  Receive Date: 20120307
  Receipt Date: 20120307
  Transmission Date: 20120608
  Serious: Yes (Life-Threatening, Hospitalization)
  Sender: FDA-Public Use
  Company Number: None

PATIENT
  Age: 29 Year
  Sex: Male
  Weight: 88.45 kg

DRUGS (1)
  1. PROPECIA [Suspect]
     Dates: start: 20110526, end: 20111029

REACTIONS (17)
  - PENIS DISORDER [None]
  - ERECTILE DYSFUNCTION [None]
  - ANXIETY [None]
  - LISTLESS [None]
  - PEYRONIE'S DISEASE [None]
  - MUSCLE TWITCHING [None]
  - BODY TEMPERATURE DECREASED [None]
  - VARICOSE VEIN [None]
  - SUICIDAL IDEATION [None]
  - MUSCLE ATROPHY [None]
  - PANIC ATTACK [None]
  - LOSS OF LIBIDO [None]
  - EMOTIONAL DISORDER [None]
  - APATHY [None]
  - MASS [None]
  - HYPOAESTHESIA [None]
  - DEPRESSION [None]
